FAERS Safety Report 7767373-3 (Version None)
Quarter: 2011Q3

REPORT INFORMATION
  Report Type: 
  Country: None (occurrence: None)
  Receive Date: 20110922
  Receipt Date: 20100330
  Transmission Date: 20111222
  Serious: Yes (Other)
  Sender: FDA-Public Use
  Company Number: US-ASTRAZENECA-2006UW06110

PATIENT
  Age: 62 Year
  Sex: Male
  Weight: 104.3 kg

DRUGS (29)
  1. SEROQUEL [Suspect]
     Route: 048
     Dates: start: 19990101
  2. SEROQUEL [Suspect]
     Route: 048
     Dates: start: 20020722, end: 20020821
  3. SEROQUEL [Suspect]
     Route: 048
     Dates: start: 20020722, end: 20020821
  4. SEROQUEL [Suspect]
     Route: 048
     Dates: start: 19990101
  5. SEROQUEL [Suspect]
     Route: 048
     Dates: start: 19990101
  6. SEROQUEL [Suspect]
     Route: 048
     Dates: start: 19990101
  7. SEROQUEL [Suspect]
     Dosage: 25MG-100MG, AT NIGHT
     Route: 048
     Dates: start: 20050506
  8. ZYPREXA [Suspect]
     Dosage: 10 MG TO 20 MG
     Dates: start: 20031101, end: 20040201
  9. SOMA [Concomitant]
     Indication: PAIN
     Route: 048
     Dates: start: 20050506
  10. RISPERDAL [Suspect]
     Dosage: 2 MG TO 3 MG
     Dates: start: 20030101, end: 20050201
  11. ACETAMINOPHEN [Concomitant]
     Indication: PAIN
     Route: 048
     Dates: start: 20040605
  12. HYDROXYZINE HYDROCHLORIDE [Concomitant]
     Indication: ANXIETY
     Dosage: 1 TAB FOUR TIMES A DAY
     Route: 048
     Dates: start: 20050506
  13. SEROQUEL [Suspect]
     Indication: ANXIETY
     Route: 048
     Dates: start: 19990101
  14. SEROQUEL [Suspect]
     Indication: DEPRESSION
     Route: 048
     Dates: start: 19990101
  15. SEROQUEL [Suspect]
     Dosage: AT NIGHT FOR ONE DAY THEN TWO TAB AT NIGHT
     Route: 048
     Dates: start: 20020722, end: 20020727
  16. NAPROXEN [Concomitant]
     Indication: PAIN
     Dosage: 1 TAB THREE TIMES A DAY
     Route: 048
     Dates: start: 20050506
  17. PHENAZOPYRIDINE HCL TAB [Concomitant]
     Indication: BLADDER PAIN
     Route: 048
     Dates: start: 20040605
  18. SEROQUEL [Suspect]
     Route: 048
     Dates: start: 20020722, end: 20020821
  19. SEROQUEL [Suspect]
     Dosage: AT NIGHT FOR ONE DAY THEN TWO TAB AT NIGHT
     Route: 048
     Dates: start: 20020722, end: 20020727
  20. SEROQUEL [Suspect]
     Dosage: 25MG-100MG, AT NIGHT
     Route: 048
     Dates: start: 20050506
  21. TRAZODONE HYDROCHLORIDE [Concomitant]
     Indication: INSOMNIA
     Route: 048
     Dates: start: 20031215
  22. SEROQUEL [Suspect]
     Dosage: AT NIGHT FOR ONE DAY THEN TWO TAB AT NIGHT
     Route: 048
     Dates: start: 20020722, end: 20020727
  23. SEROQUEL [Suspect]
     Dosage: 25MG-100MG, AT NIGHT
     Route: 048
     Dates: start: 20050506
  24. SEROQUEL [Suspect]
     Indication: SCHIZOPHRENIA
     Route: 048
     Dates: start: 19990101
  25. SEROQUEL [Suspect]
     Route: 048
     Dates: start: 19990101
  26. SEROQUEL [Suspect]
     Route: 048
     Dates: start: 19990101
  27. EFFEXOR [Concomitant]
     Route: 048
     Dates: start: 20031215
  28. SERTRALINE HYDROCHLORIDE [Concomitant]
     Dosage: 100MG, HALF TAB AT NIGHT FOR 7 DAYS THEN 1 TAB
     Route: 048
     Dates: start: 20040605
  29. METHOCARBAMOL [Concomitant]
     Route: 048
     Dates: start: 20040605

REACTIONS (3)
  - ERECTILE DYSFUNCTION [None]
  - DIABETES MELLITUS [None]
  - TYPE 2 DIABETES MELLITUS [None]
